FAERS Safety Report 10333209 (Version 1)
Quarter: 2014Q3

REPORT INFORMATION
  Report Type: Spontaneous
  Country: IT (occurrence: IT)
  Receive Date: 20140722
  Receipt Date: 20140722
  Transmission Date: 20150326
  Serious: Yes (Other)
  Sender: FDA-Public Use
  Company Number: IT-ELI_LILLY_AND_COMPANY-IT201407004995

PATIENT
  Age: 79 Year
  Sex: Male

DRUGS (2)
  1. HUMALOG [Suspect]
     Active Substance: INSULIN LISPRO
     Indication: TYPE 2 DIABETES MELLITUS
     Dosage: 66 IU, QD
     Route: 058
     Dates: start: 20140101, end: 20140524
  2. LEVEMIR [Suspect]
     Active Substance: INSULIN DETEMIR
     Indication: TYPE 2 DIABETES MELLITUS
     Dosage: 150 IU, QD
     Route: 058
     Dates: start: 20140101, end: 20140524

REACTIONS (2)
  - Hypoglycaemic unconsciousness [Unknown]
  - Tremor [Unknown]

NARRATIVE: CASE EVENT DATE: 20140524
